FAERS Safety Report 9567853 (Version 1)
Quarter: 2013Q3

REPORT INFORMATION
  Report Type: Spontaneous
  Country: US (occurrence: US)
  Receive Date: 20130930
  Receipt Date: 20130930
  Transmission Date: 20140515
  Serious: No
  Sender: FDA-Public Use
  Company Number: US-AMGEN-USASP2013015365

PATIENT
  Sex: Female
  Weight: 66.67 kg

DRUGS (6)
  1. ENBREL [Suspect]
     Indication: RHEUMATOID ARTHRITIS
     Dosage: 50 MG, QWK
     Route: 058
  2. ENBREL [Suspect]
  3. PRENATAL VITAMINS                  /02014401/ [Concomitant]
     Dosage: UNK
  4. VITAMIN D3 [Concomitant]
     Dosage: 1000 UNIT, UNK
  5. FISH OIL [Concomitant]
     Dosage: UNK
  6. SULFASALAZINE [Concomitant]
     Dosage: 500 MG, UNK

REACTIONS (2)
  - Arthralgia [Unknown]
  - Joint swelling [Unknown]
